FAERS Safety Report 11456830 (Version 3)
Quarter: 2018Q4

REPORT INFORMATION
  Report Type: Report from Study
  Country: NO (occurrence: NO)
  Receive Date: 20150903
  Receipt Date: 20181219
  Transmission Date: 20190204
  Serious: Yes (Death)
  Sender: FDA-Public Use
  Company Number: NO-ROCHE-1630037

PATIENT
  Age: 71 Year
  Sex: Male

DRUGS (8)
  1. RITUXIMAB. [Suspect]
     Active Substance: RITUXIMAB
     Indication: INTERSTITIAL LUNG DISEASE
     Dosage: 1B ON DAY 14
     Route: 042
     Dates: start: 20130105
  2. AZATHIOPRINE. [Suspect]
     Active Substance: AZATHIOPRINE
     Indication: INTERSTITIAL LUNG DISEASE
  3. PREDNISOLONE. [Suspect]
     Active Substance: PREDNISOLONE
     Indication: ANTISYNTHETASE SYNDROME
     Dosage: INITIAL DOSE: }10MG?MAINTENANCE THERAPY:  10 MGX1
     Route: 065
  4. MYCOPHENOLATE MOFETIL. [Suspect]
     Active Substance: MYCOPHENOLATE MOFETIL
     Indication: ANTISYNTHETASE SYNDROME
     Dosage: 1000MGX2
     Route: 065
     Dates: start: 201208, end: 201211
  5. MYCOPHENOLATE MOFETIL. [Suspect]
     Active Substance: MYCOPHENOLATE MOFETIL
     Indication: INTERSTITIAL LUNG DISEASE
  6. AZATHIOPRINE. [Suspect]
     Active Substance: AZATHIOPRINE
     Indication: ANTISYNTHETASE SYNDROME
     Dosage: 100MGX2
     Route: 065
     Dates: start: 201101, end: 201208
  7. RITUXIMAB. [Suspect]
     Active Substance: RITUXIMAB
     Indication: ANTISYNTHETASE SYNDROME
     Dosage: 1A ON DAY 0
     Route: 042
     Dates: start: 20121221
  8. RITUXIMAB. [Suspect]
     Active Substance: RITUXIMAB
     Dosage: 2A
     Route: 042
     Dates: start: 20130620

REACTIONS (4)
  - Lung infection [Fatal]
  - Intentional product use issue [Fatal]
  - Lung neoplasm malignant [Fatal]
  - Off label use [Fatal]

NARRATIVE: CASE EVENT DATE: 20130905
